FAERS Safety Report 14943033 (Version 2)
Quarter: 2019Q1

REPORT INFORMATION
  Report Type: Spontaneous
  Country: FR (occurrence: FR)
  Receive Date: 20180528
  Receipt Date: 20190304
  Transmission Date: 20190417
  Serious: No
  Sender: FDA-Public Use
  Company Number: FR-009507513-1805FRA006798

PATIENT
  Age: 15 Year
  Sex: Male
  Weight: 60.9 kg

DRUGS (4)
  1. TAMSULOSIN HYDROCHLORIDE. [Suspect]
     Active Substance: TAMSULOSIN HYDROCHLORIDE
     Indication: POST MICTURITION DRIBBLE
     Dosage: 0.4 MG, QD, FORMULATION: PROLONGED-RELEASE CAPSULE
     Route: 048
     Dates: start: 20180306, end: 20180315
  2. CIPROFLOXACIN. [Suspect]
     Active Substance: CIPROFLOXACIN
     Indication: INFECTION
     Dosage: 800 MILLIGRAM, QD
     Route: 041
     Dates: start: 20180309, end: 20180312
  3. CANCIDAS [Suspect]
     Active Substance: CASPOFUNGIN ACETATE
     Indication: INFECTION
     Dosage: 50 MILLIGRAM, QD
     Route: 041
     Dates: start: 20180303, end: 20180312
  4. CILASTATIN SODIUM (+) IMIPENEM [Suspect]
     Active Substance: CILASTATIN SODIUM\IMIPENEM
     Indication: INFECTION
     Route: 041
     Dates: start: 20180309, end: 20180312

REACTIONS (2)
  - Pruritus [Recovered/Resolved]
  - Dermatitis exfoliative generalised [Recovered/Resolved]

NARRATIVE: CASE EVENT DATE: 20180311
